FAERS Safety Report 17022246 (Version 2)
Quarter: 2019Q4

REPORT INFORMATION
  Report Type: Spontaneous
  Country: FR (occurrence: FR)
  Receive Date: 20191112
  Receipt Date: 20191212
  Transmission Date: 20200122
  Serious: Yes (Other)
  Sender: FDA-Public Use
  Company Number: FR-JNJFOC-20191035306

PATIENT
  Age: 66 Year
  Sex: Female

DRUGS (1)
  1. XEPLION [Suspect]
     Active Substance: PALIPERIDONE PALMITATE
     Indication: PRODUCT USED FOR UNKNOWN INDICATION
     Dosage: SINCE 1 YEAR
     Route: 030
     Dates: end: 201909

REACTIONS (26)
  - Cerebrovascular insufficiency [Unknown]
  - Cough [Unknown]
  - Muscular weakness [Unknown]
  - Weight increased [Unknown]
  - Chest discomfort [Unknown]
  - Fatigue [Unknown]
  - Eye infection [Unknown]
  - Dry eye [Unknown]
  - Asthenia [Unknown]
  - Neck pain [Unknown]
  - Sleep disorder [Unknown]
  - Vision blurred [Unknown]
  - Chest pain [Unknown]
  - Subcutaneous abscess [Unknown]
  - Unresponsive to stimuli [Unknown]
  - Hypersensitivity [Unknown]
  - Muscle spasms [Unknown]
  - Malaise [Unknown]
  - Dermatitis [Unknown]
  - Acne [Unknown]
  - Joint stiffness [Unknown]
  - Product label issue [Unknown]
  - Alopecia [Unknown]
  - Nasal congestion [Unknown]
  - Swelling [Unknown]
  - Body temperature increased [Unknown]
